FAERS Safety Report 15785969 (Version 1)
Quarter: 2019Q1

REPORT INFORMATION
  Report Type: Spontaneous
  Country: US (occurrence: US)
  Receive Date: 20190103
  Receipt Date: 20190103
  Transmission Date: 20190417
  Serious: Yes (Hospitalization)
  Sender: FDA-Public Use
  Company Number: US-SA-2018SA067890

PATIENT
  Age: 65 Year
  Sex: Female
  Weight: 68.5 kg

DRUGS (5)
  1. LOSARTAN. [Concomitant]
     Active Substance: LOSARTAN
     Dosage: 1 DF,QD
     Route: 048
     Dates: start: 20151012
  2. FABRAZYME [Suspect]
     Active Substance: AGALSIDASE BETA
     Indication: LIPIDOSIS
     Dosage: 75 MG, QOW
     Route: 041
     Dates: start: 20151012
  3. ELIQUIS [Concomitant]
     Active Substance: APIXABAN
     Dosage: 1 DF,Q12H
     Route: 048
     Dates: start: 20180225
  4. METOPROLOL. [Concomitant]
     Active Substance: METOPROLOL
     Dosage: 1 DF,BID
     Route: 048
     Dates: start: 20151012
  5. FABRAZYME [Suspect]
     Active Substance: AGALSIDASE BETA
     Indication: FABRY^S DISEASE

REACTIONS (2)
  - Chest pain [Unknown]
  - Influenza [Unknown]
